FAERS Safety Report 5578489-4 (Version None)
Quarter: 2007Q4

REPORT INFORMATION
  Report Type: 
  Country: None (occurrence: None)
  Receive Date: 20071231
  Receipt Date: 20071218
  Transmission Date: 20080405
  Serious: Yes (Death, Hospitalization)
  Sender: FDA-Public Use
  Company Number: FR-MERCK-0712FRA00070

PATIENT
  Age: 47 Year
  Sex: Male

DRUGS (7)
  1. ERTAPENEM SODIUM [Suspect]
     Indication: PYELONEPHRITIS
     Route: 051
     Dates: start: 20071103, end: 20071109
  2. AMIODARONE HYDROCHLORIDE [Suspect]
     Indication: ATRIAL FLUTTER
     Route: 042
     Dates: start: 20071030, end: 20071109
  3. AMIKACIN SULFATE [Suspect]
     Indication: PYELONEPHRITIS
     Route: 042
     Dates: start: 20071102, end: 20071107
  4. MIDAZOLAM HYDROCHLORIDE [Suspect]
     Route: 042
     Dates: start: 20071029, end: 20071107
  5. PREDNISOLONE SODIUM METASULFOBENZOATE [Concomitant]
     Route: 048
  6. ESOMEPRAZOLE MAGNESIUM [Concomitant]
     Route: 048
  7. HEPARIN [Concomitant]
     Route: 058

REACTIONS (2)
  - ARRHYTHMIA [None]
  - TRANSAMINASES INCREASED [None]
